FAERS Safety Report 11584966 (Version 2)
Quarter: 2015Q4

REPORT INFORMATION
  Report Type: Spontaneous
  Country: US (occurrence: US)
  Receive Date: 20151001
  Receipt Date: 20151116
  Transmission Date: 20160304
  Serious: Yes (Hospitalization)
  Sender: FDA-Public Use
  Company Number: US-GLAXOSMITHKLINE-US2015GSK138968

PATIENT
  Age: 50 Year
  Sex: Female

DRUGS (2)
  1. FLOLAN [Suspect]
     Active Substance: EPOPROSTENOL SODIUM
     Indication: PULMONARY HYPERTENSION
     Dosage: 40.5 DF, CO, 60,000 NG/ML, VIAL STRENGTH 1.5MG
     Route: 042
     Dates: start: 20051117
  2. FLOLAN [Suspect]
     Active Substance: EPOPROSTENOL SODIUM
     Dosage: 40 DF, CO, 60,000 NG/ML, VIAL STRENGTH 1.5MG
     Route: 042

REACTIONS (4)
  - Product measured potency issue [Unknown]
  - Incorrect product storage [Unknown]
  - Sinusitis [Unknown]
  - Dyspnoea [Unknown]

NARRATIVE: CASE EVENT DATE: 20150911
